FAERS Safety Report 16293050 (Version 1)
Quarter: 2019Q2

REPORT INFORMATION
  Report Type: Spontaneous
  Country: US (occurrence: US)
  Receive Date: 20190509
  Receipt Date: 20190509
  Transmission Date: 20190711
  Serious: No
  Sender: FDA-Public Use
  Company Number: US-GALDERMA-US18031340

PATIENT
  Age: 43 Year
  Sex: Female

DRUGS (1)
  1. PROACTIV MD ADAPALENE ACNE TREATMENT [Suspect]
     Active Substance: ADAPALENE
     Indication: ACNE
     Dosage: 0.1%
     Route: 061
     Dates: start: 20170725

REACTIONS (4)
  - Seborrhoea [Not Recovered/Not Resolved]
  - Dark circles under eyes [Not Recovered/Not Resolved]
  - Drug ineffective [Recovered/Resolved]
  - Acne [Not Recovered/Not Resolved]

NARRATIVE: CASE EVENT DATE: 201707
